FAERS Safety Report 17860148 (Version 1)
Quarter: 2020Q2

REPORT INFORMATION
  Report Type: Report from Study
  Country: US (occurrence: US)
  Receive Date: 20200604
  Receipt Date: 20200604
  Transmission Date: 20200714
  Serious: Yes (Other)
  Sender: FDA-Public Use
  Company Number: US-MYLANLABS-2020M1053699

PATIENT
  Age: 3 Year
  Sex: Male

DRUGS (18)
  1. ETOPOSIDE. [Suspect]
     Active Substance: ETOPOSIDE
     Indication: PINEALOBLASTOMA
     Dosage: UNK
     Route: 042
  2. METHOTREXATE. [Suspect]
     Active Substance: METHOTREXATE
     Indication: PINEALOBLASTOMA
     Dosage: IN REGIMEN D2 THE DOSES OF HIGH-DOSE METHOTREXATE WAS MODESTLY REDUCED
     Route: 042
  3. VINCRISTINE [Suspect]
     Active Substance: VINCRISTINE
     Indication: RETINOBLASTOMA
  4. CARBOPLATIN. [Suspect]
     Active Substance: CARBOPLATIN
     Indication: PINEALOBLASTOMA
  5. CISPLATIN. [Suspect]
     Active Substance: CISPLATIN
     Indication: PINEALOBLASTOMA
     Dosage: UNK
     Route: 042
  6. ETOPOSIDE. [Suspect]
     Active Substance: ETOPOSIDE
     Indication: RETINOBLASTOMA
  7. VINCRISTINE [Suspect]
     Active Substance: VINCRISTINE
     Indication: PINEALOBLASTOMA
     Dosage: UNK
     Route: 042
  8. CISPLATIN. [Suspect]
     Active Substance: CISPLATIN
     Indication: RETINOBLASTOMA
  9. TEMOZOLOMIDE. [Suspect]
     Active Substance: TEMOZOLOMIDE
     Indication: PINEALOBLASTOMA
     Route: 048
  10. TEMOZOLOMIDE. [Suspect]
     Active Substance: TEMOZOLOMIDE
     Indication: RETINOBLASTOMA
  11. ETOPOSIDE. [Suspect]
     Active Substance: ETOPOSIDE
     Indication: PINEALOBLASTOMA
     Route: 048
  12. ETOPOSIDE. [Suspect]
     Active Substance: ETOPOSIDE
     Indication: RETINOBLASTOMA
  13. METHOTREXATE. [Suspect]
     Active Substance: METHOTREXATE
     Indication: RETINOBLASTOMA
  14. CYCLOPHOSPHAMIDE. [Suspect]
     Active Substance: CYCLOPHOSPHAMIDE
     Indication: PINEALOBLASTOMA
     Dosage: IN REGIMEN D2 THE DOSES OF CYCLOPHOSPHAMIDE WAS MODESTLY REDUCED
     Route: 042
  15. CYCLOPHOSPHAMIDE. [Suspect]
     Active Substance: CYCLOPHOSPHAMIDE
     Indication: RETINOBLASTOMA
  16. THIOTEPA. [Suspect]
     Active Substance: THIOTEPA
     Indication: PINEALOBLASTOMA
     Route: 042
  17. CARBOPLATIN. [Suspect]
     Active Substance: CARBOPLATIN
     Indication: RETINOBLASTOMA
     Route: 042
  18. THIOTEPA. [Suspect]
     Active Substance: THIOTEPA
     Indication: RETINOBLASTOMA

REACTIONS (3)
  - Haematotoxicity [Recovered/Resolved]
  - Infection [Recovered/Resolved]
  - Sepsis [Recovered/Resolved]
